FAERS Safety Report 10249330 (Version 1)
Quarter: 2014Q2

REPORT INFORMATION
  Report Type: Spontaneous
  Country: US (occurrence: US)
  Receive Date: 20140620
  Receipt Date: 20140620
  Transmission Date: 20141212
  Serious: Yes (Other)
  Sender: FDA-Public Use
  Company Number: US-JNJFOC-20140613063

PATIENT
  Age: 15 Year
  Sex: Male
  Weight: 108.86 kg

DRUGS (7)
  1. TYLENOL PM [Suspect]
     Route: 065
  2. TYLENOL PM [Suspect]
     Indication: SUICIDE ATTEMPT
     Route: 065
     Dates: start: 20110128
  3. ADDERALL XR [Suspect]
     Indication: SUICIDE ATTEMPT
     Dosage: PATIENT TOOK 70 ADDERALL XR
     Dates: start: 20110128
  4. OXYCODONE [Suspect]
     Indication: SUICIDE ATTEMPT
     Dosage: PATIENT TOOK 10 OXYCODONE
     Route: 065
     Dates: start: 20110128
  5. MUSCLE RELAXANT [Suspect]
     Indication: SUICIDE ATTEMPT
     Dates: start: 20110128
  6. SINUS MEDICATION [Suspect]
     Indication: SUICIDE ATTEMPT
     Dates: start: 20110128
  7. INTUNIV [Concomitant]
     Indication: ATTENTION DEFICIT/HYPERACTIVITY DISORDER

REACTIONS (5)
  - Intentional overdose [Unknown]
  - Mydriasis [Unknown]
  - Nausea [Unknown]
  - Vomiting [Unknown]
  - Malaise [Unknown]
